FAERS Safety Report 13844594 (Version 1)
Quarter: 2017Q3

REPORT INFORMATION
  Report Type: Spontaneous
  Country: US (occurrence: US)
  Receive Date: 20170808
  Receipt Date: 20170808
  Transmission Date: 20171127
  Serious: No
  Sender: FDA-Public Use
  Company Number: US-DEPOMED, INC.-US-2016DEP012902

PATIENT

DRUGS (1)
  1. CAMBIA [Suspect]
     Active Substance: DICLOFENAC POTASSIUM
     Indication: PRODUCT USED FOR UNKNOWN INDICATION
     Dosage: 50 MG, 1 PACKET WITH 1-2 OUNCES OF WATER
     Route: 048
     Dates: start: 20160622

REACTIONS (1)
  - Drug prescribing error [Recovered/Resolved]

NARRATIVE: CASE EVENT DATE: 20160622
